FAERS Safety Report 6401871-X (Version None)
Quarter: 2009Q4

REPORT INFORMATION
  Report Type: 
  Country: None (occurrence: None)
  Receive Date: 20091013
  Receipt Date: 20091008
  Transmission Date: 20100525
  Serious: No
  Sender: FDA-Public Use
  Company Number: 20097457

PATIENT
  Sex: Female

DRUGS (1)
  1. LIORESAL [Suspect]
     Indication: MUSCLE SPASTICITY
     Dosage: DAILY, INTRATHECAL
     Route: 037

REACTIONS (6)
  - IMPAIRED HEALING [None]
  - IMPLANT SITE EFFUSION [None]
  - INFECTION [None]
  - MEDICAL DEVICE REMOVAL [None]
  - SEROMA [None]
  - SURGICAL PROCEDURE REPEATED [None]
